FAERS Safety Report 13903226 (Version 2)
Quarter: 2017Q3

REPORT INFORMATION
  Report Type: Spontaneous
  Country: JP (occurrence: JP)
  Receive Date: 20170824
  Receipt Date: 20170915
  Transmission Date: 20171127
  Serious: Yes (Death, Hospitalization)
  Sender: FDA-Public Use
  Company Number: JP-ABBVIE-17K-087-2080256-00

PATIENT
  Age: 75 Year
  Sex: Male
  Weight: 37 kg

DRUGS (41)
  1. HUMIRA [Suspect]
     Active Substance: ADALIMUMAB
     Route: 058
     Dates: start: 20160516, end: 20160516
  2. PREDONINE [Suspect]
     Active Substance: PREDNISOLONE
     Indication: BEHCET^S SYNDROME
     Dosage: 5 TO 30 MG (INCLUDED MPSL PULSE)
     Route: 042
     Dates: start: 20170131, end: 20170223
  3. PREDONINE [Suspect]
     Active Substance: PREDNISOLONE
     Route: 042
     Dates: start: 20170228, end: 20170308
  4. ACETAMINOPHEN. [Concomitant]
     Active Substance: ACETAMINOPHEN
     Indication: BEHCET^S SYNDROME
     Route: 042
     Dates: start: 20170124
  5. LANSOPRAZOLE. [Concomitant]
     Active Substance: LANSOPRAZOLE
     Route: 048
     Dates: start: 20170228, end: 20170316
  6. BETAMETHASONE. [Concomitant]
     Active Substance: BETAMETHASONE
     Indication: BEHCET^S SYNDROME
     Route: 048
     Dates: start: 20170522
  7. METHYLPREDNISOLONE SODIUM SUCCINATE. [Concomitant]
     Active Substance: METHYLPREDNISOLONE SODIUM SUCCINATE
     Indication: BEHCET^S SYNDROME
     Route: 042
     Dates: start: 20170111, end: 20170113
  8. NEORAL [Suspect]
     Active Substance: CYCLOSPORINE
     Route: 048
     Dates: start: 20170213, end: 20170228
  9. PREDONINE [Suspect]
     Active Substance: PREDNISOLONE
     Route: 042
     Dates: start: 20170224, end: 20170227
  10. PREDONINE [Suspect]
     Active Substance: PREDNISOLONE
     Route: 042
     Dates: start: 20170309
  11. CEFMETAZOLE SODIUM [Concomitant]
     Active Substance: CEFMETAZOLE SODIUM
     Indication: BEHCET^S SYNDROME
     Route: 042
     Dates: start: 20170110, end: 20170116
  12. ATOVAQUONE. [Concomitant]
     Active Substance: ATOVAQUONE
     Indication: PROPHYLAXIS
     Route: 048
     Dates: start: 20170308, end: 20170310
  13. NEORAL [Suspect]
     Active Substance: CYCLOSPORINE
     Indication: BEHCET^S SYNDROME
     Route: 048
     Dates: start: 20170206, end: 20170212
  14. NEORAL [Suspect]
     Active Substance: CYCLOSPORINE
     Route: 048
     Dates: start: 20170213, end: 20170228
  15. TRAMAL [Suspect]
     Active Substance: TRAMADOL
     Indication: BEHCET^S SYNDROME
     Route: 030
     Dates: start: 20170110, end: 20170116
  16. TAZOBACTAM [Concomitant]
     Active Substance: TAZOBACTAM
     Indication: PROPHYLAXIS
     Route: 042
     Dates: start: 20170316, end: 20170321
  17. LANSOPRAZOLE. [Concomitant]
     Active Substance: LANSOPRAZOLE
     Indication: PROPHYLAXIS
     Route: 048
     Dates: end: 20170117
  18. MESALAZINE [Concomitant]
     Active Substance: MESALAMINE
     Indication: BEHCET^S SYNDROME
     Route: 048
     Dates: start: 20170117
  19. PROGRAF [Suspect]
     Active Substance: TACROLIMUS\TACROLIMUS ANHYDROUS
     Route: 048
     Dates: start: 20170522, end: 20170531
  20. PREDONINE [Suspect]
     Active Substance: PREDNISOLONE
     Indication: BEHCET^S SYNDROME
     Route: 048
     Dates: start: 2011, end: 20170111
  21. TRAMAL [Suspect]
     Active Substance: TRAMADOL
     Indication: BEHCET^S SYNDROME
     Route: 048
     Dates: start: 20170104, end: 20170117
  22. OMEPRAZOLE. [Concomitant]
     Active Substance: OMEPRAZOLE
     Route: 042
     Dates: start: 20170325, end: 20170405
  23. HUMIRA [Suspect]
     Active Substance: ADALIMUMAB
     Route: 058
     Dates: start: 20170517, end: 20170517
  24. REMICADE [Suspect]
     Active Substance: INFLIXIMAB
     Route: 042
     Dates: start: 20170228, end: 20170228
  25. CIMZIA [Suspect]
     Active Substance: CERTOLIZUMAB PEGOL
     Indication: BEHCET^S SYNDROME
     Route: 058
     Dates: start: 20170522, end: 20170522
  26. BREDININ [Suspect]
     Active Substance: MIZORIBINE
     Indication: BEHCET^S SYNDROME
     Route: 048
     Dates: start: 20170503, end: 20170517
  27. CLOMIPRAMINE HYDROCHLORIDE. [Concomitant]
     Active Substance: CLOMIPRAMINE HYDROCHLORIDE
     Indication: BEHCET^S SYNDROME
     Route: 042
     Dates: start: 20170127, end: 20170226
  28. REBAMIPIDE [Concomitant]
     Active Substance: REBAMIPIDE
     Indication: PROPHYLAXIS
     Route: 048
     Dates: start: 20170117
  29. MOSAPRIDE CITRATE [Concomitant]
     Active Substance: MOSAPRIDE CITRATE
     Indication: PROPHYLAXIS
     Route: 048
     Dates: start: 20170104, end: 20170110
  30. COLCHICINE. [Concomitant]
     Active Substance: COLCHICINE
     Indication: BEHCET^S SYNDROME
     Route: 048
     Dates: start: 20160516
  31. REMICADE [Suspect]
     Active Substance: INFLIXIMAB
     Indication: BEHCET^S SYNDROME
     Route: 042
     Dates: start: 20170117, end: 20170117
  32. VITAMIN E NICOTINATE [Concomitant]
     Indication: PRODUCT USED FOR UNKNOWN INDICATION
     Route: 048
  33. MESALAZINE [Concomitant]
     Active Substance: MESALAMINE
     Route: 048
     Dates: start: 20170307, end: 20170316
  34. PROGRAF [Suspect]
     Active Substance: TACROLIMUS\TACROLIMUS ANHYDROUS
     Indication: BEHCET^S SYNDROME
     Route: 048
     Dates: start: 20170517, end: 20170522
  35. HYDROXYZINE HYDROCHLORIDE. [Concomitant]
     Active Substance: HYDROXYZINE HYDROCHLORIDE
     Indication: BEHCET^S SYNDROME
     Route: 042
     Dates: start: 20170127, end: 20170131
  36. FAMOTIDINE. [Concomitant]
     Active Substance: FAMOTIDINE
     Indication: PROPHYLAXIS
     Route: 042
     Dates: start: 20170317, end: 20170324
  37. HUMIRA [Suspect]
     Active Substance: ADALIMUMAB
     Indication: BEHCET^S SYNDROME
     Route: 058
     Dates: start: 20160502, end: 20160502
  38. HUMIRA [Suspect]
     Active Substance: ADALIMUMAB
     Route: 058
     Dates: start: 20160530, end: 20161227
  39. REMICADE [Suspect]
     Active Substance: INFLIXIMAB
     Route: 042
     Dates: start: 20170131, end: 20170131
  40. OMEPRAZOLE. [Concomitant]
     Active Substance: OMEPRAZOLE
     Indication: PROPHYLAXIS
     Route: 042
     Dates: start: 20170118, end: 20170227
  41. POLAPREZINC [Concomitant]
     Active Substance: POLAPREZINC
     Indication: BEHCET^S SYNDROME
     Route: 048
     Dates: end: 20170112

REACTIONS (11)
  - Blood creatinine decreased [Unknown]
  - Renal infarct [Fatal]
  - Mucormycosis [Fatal]
  - Pyrexia [Not Recovered/Not Resolved]
  - Laboratory test abnormal [Unknown]
  - White blood cell count increased [Unknown]
  - Blood lactate dehydrogenase increased [Unknown]
  - C-reactive protein increased [Unknown]
  - Blood alkaline phosphatase increased [Unknown]
  - Pancreatitis acute [Recovered/Resolved]
  - Haemoglobin decreased [Unknown]

NARRATIVE: CASE EVENT DATE: 20170121
